FAERS Safety Report 9696461 (Version 2)
Quarter: 2018Q4

REPORT INFORMATION
  Report Type: Spontaneous
  Country: US (occurrence: US)
  Receive Date: 20131119
  Receipt Date: 20181015
  Transmission Date: 20190205
  Serious: Yes (Life-Threatening, Hospitalization, Other)
  Sender: FDA-Public Use
  Company Number: US-MYLANLABS-2013S1025307

PATIENT
  Age: 45 Year
  Sex: Female

DRUGS (2)
  1. QUININE [Suspect]
     Active Substance: QUININE
     Indication: PRODUCT USED FOR UNKNOWN INDICATION
     Dosage: UNK
     Route: 048
  2. CITALOPRAM [Suspect]
     Active Substance: CITALOPRAM HYDROBROMIDE
     Indication: PRODUCT USED FOR UNKNOWN INDICATION
     Route: 048

REACTIONS (11)
  - Shock [Unknown]
  - Diastolic dysfunction [Unknown]
  - Lactic acidosis [Unknown]
  - Retinal toxicity [Recovering/Resolving]
  - Intentional overdose [Recovering/Resolving]
  - Electrocardiogram QRS complex prolonged [Unknown]
  - Electrocardiogram QT prolonged [Unknown]
  - Visual impairment [Recovering/Resolving]
  - Seizure [Unknown]
  - Hypotension [Recovering/Resolving]
  - Arrhythmia [Unknown]
